FAERS Safety Report 9405492 (Version 1)
Quarter: 2013Q3

REPORT INFORMATION
  Report Type: Spontaneous
  Country: NL (occurrence: NL)
  Receive Date: 20130717
  Receipt Date: 20130717
  Transmission Date: 20140515
  Serious: Yes (Other)
  Sender: FDA-Public Use
  Company Number: NL-ROXANE LABORATORIES, INC.-2013-RO-01158RO

PATIENT
  Age: 63 Year
  Sex: Male

DRUGS (5)
  1. AZATHIOPRINE [Suspect]
     Indication: CENTRAL NERVOUS SYSTEM INFLAMMATION
     Dosage: 100 MG
  2. METHOTREXATE [Suspect]
     Indication: CENTRAL NERVOUS SYSTEM INFLAMMATION
  3. PREDNISONE [Suspect]
     Indication: CENTRAL NERVOUS SYSTEM INFLAMMATION
     Dosage: 20 MG
  4. MYCOPHENOLATE MOFETIL [Suspect]
     Indication: CENTRAL NERVOUS SYSTEM INFLAMMATION
     Dosage: 2000 MG
  5. PREDNISOLONE [Suspect]
     Indication: CENTRAL NERVOUS SYSTEM INFLAMMATION
     Dosage: 80 MG
     Route: 048

REACTIONS (6)
  - Diabetes mellitus [Unknown]
  - Deep vein thrombosis [Unknown]
  - Hepatic function abnormal [Unknown]
  - Pancytopenia [Unknown]
  - Bone marrow disorder [Unknown]
  - Herpes virus infection [Unknown]
